FAERS Safety Report 4876858-9 (Version None)
Quarter: 2006Q1

REPORT INFORMATION
  Report Type: 
  Country: None (occurrence: None)
  Receive Date: 20060109
  Receipt Date: 20060109
  Transmission Date: 20060701
  Serious: Yes (Other)
  Sender: FDA-Public Use
  Company Number: None

PATIENT
  Sex: Male
  Weight: 28.123 kg

DRUGS (1)
  1. CONCERTA [Suspect]
     Indication: ATTENTION DEFICIT/HYPERACTIVITY DISORDER
     Dosage: 1 PIL -36 MG- DAILY PO
     Route: 048
     Dates: start: 20040801, end: 20060106

REACTIONS (2)
  - DEPRESSION [None]
  - SELF-INJURIOUS IDEATION [None]
